FAERS Safety Report 18534729 (Version 4)
Quarter: 2021Q1

REPORT INFORMATION
  Report Type: Spontaneous
  Country: DE (occurrence: DE)
  Receive Date: 20201123
  Receipt Date: 20210301
  Transmission Date: 20210419
  Serious: Yes (Hospitalization)
  Sender: FDA-Public Use
  Company Number: DE-ROCHE-2712112

PATIENT
  Age: 45 Year
  Sex: Female

DRUGS (6)
  1. OCREVUS [Suspect]
     Active Substance: OCRELIZUMAB
     Dosage: 3RD ADMINISTARTION
     Route: 042
     Dates: start: 20190226
  2. OMEGA 3 [Concomitant]
     Active Substance: OMEGA-3 FATTY ACIDS
  3. OCREVUS [Suspect]
     Active Substance: OCRELIZUMAB
     Dosage: 5 TH ADMINISTRATION
     Route: 042
     Dates: start: 20200210
  4. OCREVUS [Suspect]
     Active Substance: OCRELIZUMAB
     Dosage: 4 TH ADMINISTRATION
     Route: 042
     Dates: start: 20190827
  5. OCREVUS [Suspect]
     Active Substance: OCRELIZUMAB
     Indication: MULTIPLE SCLEROSIS
     Dosage: 1ST AND 2ND ADMINISTRATION
     Route: 042
     Dates: start: 20180807, end: 20180821
  6. LAIF 900 [Concomitant]

REACTIONS (2)
  - Erythema infectiosum [Recovered/Resolved]
  - Encephalitis viral [Recovering/Resolving]

NARRATIVE: CASE EVENT DATE: 202008
